FAERS Safety Report 19595676 (Version 1)
Quarter: 2021Q3

REPORT INFORMATION
  Report Type: Spontaneous
  Country: DE (occurrence: DE)
  Receive Date: 20210722
  Receipt Date: 20210722
  Transmission Date: 20211014
  Serious: Yes (Hospitalization)
  Sender: FDA-Public Use
  Company Number: DE-ACCORD-232525

PATIENT
  Age: 78 Year
  Sex: Male
  Weight: 102 kg

DRUGS (8)
  1. SPIRONOLACTONE. [Suspect]
     Active Substance: SPIRONOLACTONE
     Indication: PRODUCT USED FOR UNKNOWN INDICATION
     Dosage: 50 MG, 0.5?0?0?0, TABLET
     Route: 048
  2. METOPROLOL. [Concomitant]
     Active Substance: METOPROLOL
     Dosage: 95 MG, 0.5?0?0?0, SUSTAINED?RELEASE TABLETS
     Route: 048
  3. BECLOMETASONE/FORMOTEROL/GLYCOPYRRONIUM [Concomitant]
     Dosage: 2?0?2?0, METERED DOSE INHALER
     Route: 055
  4. FOLIC ACID ABZ [Concomitant]
     Active Substance: FOLIC ACID
     Dosage: 5 MG, 1?0?0?0, TABLET
     Route: 048
  5. AMLODIPINE [Concomitant]
     Active Substance: AMLODIPINE BESYLATE
     Dosage: 5 MG, 1?0?0?0, TABLET
     Route: 048
  6. EDOXABAN [Concomitant]
     Active Substance: EDOXABAN TOSYLATE
     Dosage: 30 MG, 1?0?0?0, TABLET
     Route: 048
  7. PANTOPRAZOLE [Concomitant]
     Active Substance: PANTOPRAZOLE
     Dosage: 40 MG, 1?0?0?0, TABLET
     Route: 048
  8. RAMIPRIL. [Suspect]
     Active Substance: RAMIPRIL
     Indication: PRODUCT USED FOR UNKNOWN INDICATION
     Dosage: 5 MG, 1?0?0?0, PROLONGED?RELEASE TABLETS
     Route: 048

REACTIONS (4)
  - General physical health deterioration [Unknown]
  - Electrolyte imbalance [Unknown]
  - Hypophagia [Unknown]
  - Dyspnoea [Unknown]
